FAERS Safety Report 17075499 (Version 1)
Quarter: 2019Q4

REPORT INFORMATION
  Report Type: Spontaneous
  Country: US (occurrence: US)
  Receive Date: 20191126
  Receipt Date: 20191126
  Transmission Date: 20200122
  Serious: No
  Sender: FDA-Public Use
  Company Number: US-PFIZER INC-2019507195

PATIENT
  Age: 68 Year
  Sex: Male

DRUGS (1)
  1. TESTOSTERONE CIPIONATE [Suspect]
     Active Substance: TESTOSTERONE
     Dosage: TESTOSTERONE 30MG/ ACTUATION (15MG) SIPM, APPLY FOUR PUMPS TO SKIN EVERY DAY

REACTIONS (6)
  - Fatigue [Unknown]
  - Arthralgia [Unknown]
  - Nocturia [Unknown]
  - Asthenia [Unknown]
  - Insomnia [Unknown]
  - Libido decreased [Unknown]
